FAERS Safety Report 12705062 (Version 1)
Quarter: 2016Q3

REPORT INFORMATION
  Report Type: Spontaneous
  Country: US (occurrence: None)
  Receive Date: 20160831
  Receipt Date: 20160831
  Transmission Date: 20161109
  Serious: Yes (Disabling)
  Sender: FDA-Public Use
  Company Number: None

PATIENT
  Age: 32 Year
  Sex: Female
  Weight: 63.5 kg

DRUGS (2)
  1. PARAGARD T 380A [Suspect]
     Active Substance: COPPER
  2. WOMENS DAILY MULTIVITAMIN [Concomitant]

REACTIONS (3)
  - Drug ineffective [None]
  - Bone pain [None]
  - Menorrhagia [None]

NARRATIVE: CASE EVENT DATE: 20140425
